FAERS Safety Report 10075425 (Version 1)
Quarter: 2014Q1

REPORT INFORMATION
  Report Type: Spontaneous
  Country: US (occurrence: None)
  Receive Date: 20140318
  Receipt Date: 20140318
  Transmission Date: 20141002
  Serious: No
  Sender: FDA-Public Use
  Company Number: 2014-00039

PATIENT
  Age: 79 Year
  Sex: Male

DRUGS (2)
  1. ZICAM COLD REMEDY ORAL MIST [Suspect]
     Indication: NASOPHARYNGITIS
     Dosage: SPRAYED ORALLY X NOS
     Route: 048
     Dates: start: 201303
  2. UNSPECIFIED EYE DROPS [Concomitant]

REACTIONS (1)
  - Anosmia [None]
